FAERS Safety Report 25640798 (Version 1)
Quarter: 2025Q3

REPORT INFORMATION
  Report Type: Spontaneous
  Country: EU (occurrence: EU)
  Receive Date: 20250804
  Receipt Date: 20250804
  Transmission Date: 20251021
  Serious: Yes (Congenital Anomaly)
  Sender: MYLAN
  Company Number: None

PATIENT
  Sex: Female

DRUGS (48)
  1. PREDNISONE [Suspect]
     Active Substance: PREDNISONE
     Indication: Prophylaxis against graft versus host disease
     Dosage: 10 MILLIGRAM, QD (1-0-0)
  2. PREDNISONE [Suspect]
     Active Substance: PREDNISONE
     Dosage: 10 MILLIGRAM, QD (1-0-0)
  3. PREDNISONE [Suspect]
     Active Substance: PREDNISONE
     Dosage: 10 MILLIGRAM, QD (1-0-0)
     Route: 064
  4. PREDNISONE [Suspect]
     Active Substance: PREDNISONE
     Dosage: 10 MILLIGRAM, QD (1-0-0)
     Route: 064
  5. PREDNISONE [Suspect]
     Active Substance: PREDNISONE
     Dosage: 10 MILLIGRAM, QD (1-0-0)
  6. PREDNISONE [Suspect]
     Active Substance: PREDNISONE
     Dosage: 10 MILLIGRAM, QD (1-0-0)
  7. PREDNISONE [Suspect]
     Active Substance: PREDNISONE
     Dosage: 10 MILLIGRAM, QD (1-0-0)
     Route: 064
  8. PREDNISONE [Suspect]
     Active Substance: PREDNISONE
     Dosage: 10 MILLIGRAM, QD (1-0-0)
     Route: 064
  9. AMLODIPINE [Suspect]
     Active Substance: AMLODIPINE BESYLATE
     Indication: Hypertension
     Dosage: 10 MILLIGRAM, QD (1-0-0)
  10. AMLODIPINE [Suspect]
     Active Substance: AMLODIPINE BESYLATE
     Dosage: 10 MILLIGRAM, QD (1-0-0)
  11. AMLODIPINE [Suspect]
     Active Substance: AMLODIPINE BESYLATE
     Dosage: 10 MILLIGRAM, QD (1-0-0)
     Route: 064
  12. AMLODIPINE [Suspect]
     Active Substance: AMLODIPINE BESYLATE
     Dosage: 10 MILLIGRAM, QD (1-0-0)
     Route: 064
  13. AMLODIPINE [Suspect]
     Active Substance: AMLODIPINE BESYLATE
     Dosage: 10 MILLIGRAM, QD (1-0-0)
  14. AMLODIPINE [Suspect]
     Active Substance: AMLODIPINE BESYLATE
     Dosage: 10 MILLIGRAM, QD (1-0-0)
  15. AMLODIPINE [Suspect]
     Active Substance: AMLODIPINE BESYLATE
     Dosage: 10 MILLIGRAM, QD (1-0-0)
     Route: 064
  16. AMLODIPINE [Suspect]
     Active Substance: AMLODIPINE BESYLATE
     Dosage: 10 MILLIGRAM, QD (1-0-0)
     Route: 064
  17. ENVARSUS XR [Suspect]
     Active Substance: TACROLIMUS
     Indication: Prophylaxis against graft versus host disease
     Dosage: 7 MILLIGRAM, QD (1-0-0)
  18. ENVARSUS XR [Suspect]
     Active Substance: TACROLIMUS
     Dosage: 7 MILLIGRAM, QD (1-0-0)
  19. ENVARSUS XR [Suspect]
     Active Substance: TACROLIMUS
     Dosage: 7 MILLIGRAM, QD (1-0-0)
     Route: 064
  20. ENVARSUS XR [Suspect]
     Active Substance: TACROLIMUS
     Dosage: 7 MILLIGRAM, QD (1-0-0)
     Route: 064
  21. ENVARSUS XR [Suspect]
     Active Substance: TACROLIMUS
     Dosage: 7 MILLIGRAM, QD (1-0-0)
  22. ENVARSUS XR [Suspect]
     Active Substance: TACROLIMUS
     Dosage: 7 MILLIGRAM, QD (1-0-0)
  23. ENVARSUS XR [Suspect]
     Active Substance: TACROLIMUS
     Dosage: 7 MILLIGRAM, QD (1-0-0)
     Route: 064
  24. ENVARSUS XR [Suspect]
     Active Substance: TACROLIMUS
     Dosage: 7 MILLIGRAM, QD (1-0-0)
     Route: 064
  25. ARANESP [Suspect]
     Active Substance: DARBEPOETIN ALFA
     Indication: Anaemia
     Dosage: 40 MICROGRAM, QW
  26. ARANESP [Suspect]
     Active Substance: DARBEPOETIN ALFA
     Dosage: 40 MICROGRAM, QW
  27. ARANESP [Suspect]
     Active Substance: DARBEPOETIN ALFA
     Dosage: 40 MICROGRAM, QW
     Route: 064
  28. ARANESP [Suspect]
     Active Substance: DARBEPOETIN ALFA
     Dosage: 40 MICROGRAM, QW
     Route: 064
  29. ARANESP [Suspect]
     Active Substance: DARBEPOETIN ALFA
     Dosage: 40 MICROGRAM, QW
  30. ARANESP [Suspect]
     Active Substance: DARBEPOETIN ALFA
     Dosage: 40 MICROGRAM, QW
  31. ARANESP [Suspect]
     Active Substance: DARBEPOETIN ALFA
     Dosage: 40 MICROGRAM, QW
     Route: 064
  32. ARANESP [Suspect]
     Active Substance: DARBEPOETIN ALFA
     Dosage: 40 MICROGRAM, QW
     Route: 064
  33. PLAQUENIL [Suspect]
     Active Substance: HYDROXYCHLOROQUINE SULFATE
     Indication: Lupus-like syndrome
     Dosage: 200 MILLIGRAM, QD (1-0-1)
  34. PLAQUENIL [Suspect]
     Active Substance: HYDROXYCHLOROQUINE SULFATE
     Dosage: 200 MILLIGRAM, QD (1-0-1)
  35. PLAQUENIL [Suspect]
     Active Substance: HYDROXYCHLOROQUINE SULFATE
     Dosage: 200 MILLIGRAM, QD (1-0-1)
     Route: 064
  36. PLAQUENIL [Suspect]
     Active Substance: HYDROXYCHLOROQUINE SULFATE
     Dosage: 200 MILLIGRAM, QD (1-0-1)
     Route: 064
  37. PLAQUENIL [Suspect]
     Active Substance: HYDROXYCHLOROQUINE SULFATE
     Dosage: 200 MILLIGRAM, QD (1-0-1)
  38. PLAQUENIL [Suspect]
     Active Substance: HYDROXYCHLOROQUINE SULFATE
     Dosage: 200 MILLIGRAM, QD (1-0-1)
  39. PLAQUENIL [Suspect]
     Active Substance: HYDROXYCHLOROQUINE SULFATE
     Dosage: 200 MILLIGRAM, QD (1-0-1)
     Route: 064
  40. PLAQUENIL [Suspect]
     Active Substance: HYDROXYCHLOROQUINE SULFATE
     Dosage: 200 MILLIGRAM, QD (1-0-1)
     Route: 064
  41. NULOJIX [Suspect]
     Active Substance: BELATACEPT
     Indication: Prophylaxis against graft versus host disease
  42. NULOJIX [Suspect]
     Active Substance: BELATACEPT
  43. NULOJIX [Suspect]
     Active Substance: BELATACEPT
     Route: 042
  44. NULOJIX [Suspect]
     Active Substance: BELATACEPT
     Route: 042
  45. NULOJIX [Suspect]
     Active Substance: BELATACEPT
  46. NULOJIX [Suspect]
     Active Substance: BELATACEPT
  47. NULOJIX [Suspect]
     Active Substance: BELATACEPT
     Route: 042
  48. NULOJIX [Suspect]
     Active Substance: BELATACEPT
     Route: 042

REACTIONS (2)
  - Microcephaly [Not Recovered/Not Resolved]
  - Foetal exposure during pregnancy [Recovered/Resolved]

NARRATIVE: CASE EVENT DATE: 20250601
